FAERS Safety Report 22265387 (Version 2)
Quarter: 2024Q1

REPORT INFORMATION
  Report Type: Spontaneous
  Country: FR (occurrence: FR)
  Receive Date: 20230428
  Receipt Date: 20240119
  Transmission Date: 20240410
  Serious: Yes (Hospitalization)
  Sender: FDA-Public Use
  Company Number: None

PATIENT
  Age: 40 Year
  Sex: Female
  Weight: 38 kg

DRUGS (2)
  1. PANTOPRAZOLE [Suspect]
     Active Substance: PANTOPRAZOLE
     Dosage: 80 MILLIGRAM, QD
     Route: 042
     Dates: start: 20230408, end: 20230413
  2. VORICONAZOLE [Suspect]
     Active Substance: VORICONAZOLE
     Dosage: 150 MG, 2X/DAY: MORNING AND EVENING
     Route: 048
     Dates: start: 20230322, end: 20230413

REACTIONS (3)
  - Pancytopenia [Recovering/Resolving]
  - Cholestasis [Recovering/Resolving]
  - Off label use [Unknown]

NARRATIVE: CASE EVENT DATE: 20230322
